FAERS Safety Report 23965538 (Version 1)
Quarter: 2024Q2

REPORT INFORMATION
  Report Type: Spontaneous
  Country: RO (occurrence: RO)
  Receive Date: 20240612
  Receipt Date: 20240612
  Transmission Date: 20240716
  Serious: Yes (Other)
  Sender: FDA-Public Use
  Company Number: RO-FERRINGPH-2024FE02918

PATIENT
  Age: 32 Year
  Sex: Male

DRUGS (4)
  1. MESALAMINE [Suspect]
     Active Substance: MESALAMINE
     Indication: Colitis ulcerative
     Dosage: 3 G, DAILY
     Route: 048
     Dates: start: 2017, end: 202206
  2. BUDESONIDE [Suspect]
     Active Substance: BUDESONIDE
     Indication: Colitis ulcerative
     Dosage: 1 DOSAGE FORM, DAILY
     Route: 048
     Dates: start: 202212, end: 202303
  3. VEDOLIZUMAB [Concomitant]
     Active Substance: VEDOLIZUMAB
     Indication: Colitis ulcerative
     Dosage: 0,2,6 300MG I.V MONTHLY
     Route: 042
     Dates: start: 202206, end: 202303
  4. MESALAMINE [Suspect]
     Active Substance: MESALAMINE
     Indication: Colitis ulcerative
     Dosage: 1 G, DAILY
     Route: 054
     Dates: start: 2017, end: 202206

REACTIONS (6)
  - Rectal haemorrhage [Recovering/Resolving]
  - Colitis ulcerative [Recovering/Resolving]
  - Drug ineffective [Unknown]
  - Fatigue [Recovering/Resolving]
  - Inflammation [Recovering/Resolving]
  - Iron deficiency anaemia [Recovering/Resolving]

NARRATIVE: CASE EVENT DATE: 20210701
